FAERS Safety Report 23631183 (Version 1)
Quarter: 2024Q1

REPORT INFORMATION
  Report Type: Spontaneous
  Country: US (occurrence: US)
  Receive Date: 20240314
  Receipt Date: 20240314
  Transmission Date: 20240409
  Serious: Yes (Other)
  Sender: FDA-Public Use
  Company Number: US-SUN PHARMACEUTICAL INDUSTRIES LTD-2024R1-436010

PATIENT
  Sex: Female

DRUGS (1)
  1. BACTRIM DS [Suspect]
     Active Substance: SULFAMETHOXAZOLE\TRIMETHOPRIM
     Indication: Urinary tract infection
     Dosage: UNK (1 TABLET,2X/DAY)
     Route: 048
     Dates: start: 20240208, end: 20240213

REACTIONS (2)
  - Facial paralysis [Not Recovered/Not Resolved]
  - Therapy cessation [Unknown]
